FAERS Safety Report 17953427 (Version 2)
Quarter: 2020Q3

REPORT INFORMATION
  Report Type: Other
  Country: US (occurrence: US)
  Receive Date: 20200628
  Receipt Date: 20200702
  Transmission Date: 20201103
  Serious: Yes (Death)
  Sender: FDA-Public Use
  Company Number: US-AMARIN PHARMA, INC.-2020AMR000406

PATIENT
  Age: 66 Year
  Sex: Male

DRUGS (1)
  1. VASCEPA [Suspect]
     Active Substance: ICOSAPENT ETHYL
     Indication: HYPERTRIGLYCERIDAEMIA
     Route: 048

REACTIONS (2)
  - Cholangiocarcinoma [Fatal]
  - Prescribed underdose [Unknown]
